FAERS Safety Report 23479472 (Version 1)
Quarter: 2024Q1

REPORT INFORMATION
  Report Type: Spontaneous
  Country: US (occurrence: US)
  Receive Date: 20240205
  Receipt Date: 20240205
  Transmission Date: 20240410
  Serious: Yes (Other)
  Sender: FDA-Public Use
  Company Number: US-NOVOPROD-1168877

PATIENT
  Age: 83 Year
  Sex: Male

DRUGS (1)
  1. TRESIBA [Suspect]
     Active Substance: INSULIN DEGLUDEC
     Indication: Product used for unknown indication
     Dosage: 30 IU
     Route: 058

REACTIONS (2)
  - Cerebrovascular accident [Unknown]
  - Dementia [Unknown]

NARRATIVE: CASE EVENT DATE: 20220101
